FAERS Safety Report 6906464-3 (Version None)
Quarter: 2010Q3

REPORT INFORMATION
  Report Type: 
  Country: None (occurrence: None)
  Receive Date: 20100804
  Receipt Date: 20100723
  Transmission Date: 20110219
  Serious: No
  Sender: FDA-Public Use
  Company Number: DE-ELI_LILLY_AND_COMPANY-DE201006006771

PATIENT
  Sex: Female
  Weight: 52 kg

DRUGS (2)
  1. LISPRO [Suspect]
     Indication: DIABETES MELLITUS
     Dosage: 42 IE, FIVE TIMES DAILY
     Route: 058
     Dates: start: 20100503, end: 20100610
  2. PROTAPHANE [Concomitant]
     Indication: DIABETES MELLITUS
     Dates: start: 20080915

REACTIONS (1)
  - INJECTION SITE PAIN [None]
